FAERS Safety Report 4727596-4 (Version None)
Quarter: 2005Q3

REPORT INFORMATION
  Report Type: 
  Country: None (occurrence: None)
  Receive Date: 20050728
  Receipt Date: 20050721
  Transmission Date: 20060218
  Serious: Yes (Other)
  Sender: FDA-Public Use
  Company Number: 200515941US

PATIENT
  Sex: Male
  Weight: 88 kg

DRUGS (5)
  1. LANTUS [Suspect]
     Indication: DIABETES MELLITUS INSULIN-DEPENDENT
     Dosage: DOSE: 40 OR 45; DOSE UNIT: UNITS
     Dates: start: 20050715, end: 20050721
  2. REGULAR INSULIN [Concomitant]
     Indication: DIABETES MELLITUS INSULIN-DEPENDENT
     Dosage: DOSE: SELF ADJUSTS
  3. NPH INSULIN [Concomitant]
     Indication: DIABETES MELLITUS INSULIN-DEPENDENT
     Dosage: DOSE: NOT PROVIDED
  4. LISINOPRIL [Concomitant]
     Indication: HYPERTENSION
  5. SERUMLIPIDREDUCING AGENTS [Concomitant]
     Indication: HYPERCHOLESTEROLAEMIA
     Dosage: DOSE: 20/40

REACTIONS (8)
  - BLOOD GLUCOSE DECREASED [None]
  - DECREASED APPETITE [None]
  - EYE HAEMORRHAGE [None]
  - HYPERGLYCAEMIA [None]
  - PARAESTHESIA ORAL [None]
  - PHARMACEUTICAL PRODUCT COMPLAINT [None]
  - VISION BLURRED [None]
  - VITREOUS FLOATERS [None]
